FAERS Safety Report 9291008 (Version 1)
Quarter: 2013Q2

REPORT INFORMATION
  Report Type: Spontaneous
  Country: BR (occurrence: BR)
  Receive Date: 20130515
  Receipt Date: 20130515
  Transmission Date: 20140414
  Serious: Yes (Other)
  Sender: FDA-Public Use
  Company Number: BR-009507513-1305BRA006953

PATIENT
  Age: 27 Year
  Sex: Female
  Weight: 78 kg

DRUGS (2)
  1. MERCILON [Suspect]
     Indication: CONTRACEPTION
     Dosage: 1 DF, QD
     Route: 048
     Dates: start: 2002, end: 201102
  2. MERCILON [Suspect]
     Dosage: 1 DF, QD
     Route: 048
     Dates: start: 201209

REACTIONS (2)
  - Caesarean section [Recovered/Resolved]
  - Inappropriate schedule of drug administration [Unknown]
